FAERS Safety Report 9713343 (Version 2)
Quarter: 2013Q4

REPORT INFORMATION
  Report Type: Spontaneous
  Country: JP (occurrence: JP)
  Receive Date: 20131126
  Receipt Date: 20131126
  Transmission Date: 20140711
  Serious: Yes (Hospitalization, Other)
  Sender: FDA-Public Use
  Company Number: JP-PFIZER INC-2013157496

PATIENT
  Age: 5 Year
  Sex: Male

DRUGS (7)
  1. DAUNOMYCIN [Suspect]
     Indication: B PRECURSOR TYPE ACUTE LEUKAEMIA
     Dosage: 30 MG/M2/DAY, 1 H, DAYS 8, 16
     Route: 041
  2. METHOTREXATE SODIUM [Suspect]
     Indication: B PRECURSOR TYPE ACUTE LEUKAEMIA
     Dosage: DAY 8, 16, 29
     Route: 037
  3. HYDROCORTISONE SODIUM SUCCINATE [Suspect]
     Indication: B PRECURSOR TYPE ACUTE LEUKAEMIA
     Dosage: DAY 8,16, 29
     Route: 037
  4. CYTARABINE [Suspect]
     Indication: B PRECURSOR TYPE ACUTE LEUKAEMIA
     Dosage: DAYS 8, 16, 29
     Route: 037
  5. PREDNISOLONE [Suspect]
     Indication: B PRECURSOR TYPE ACUTE LEUKAEMIA
     Dosage: 60 MG/M2/DAY ON DAY 1-28
  6. VINCRISTINE SULFATE [Suspect]
     Indication: B PRECURSOR TYPE ACUTE LEUKAEMIA
     Dosage: 1.5 MG/M2, DAYS 8, 16, 22, 29
     Route: 041
  7. L-ASPARAGINASE [Suspect]
     Indication: B PRECURSOR TYPE ACUTE LEUKAEMIA
     Dosage: 5000 U/M2/DAY, 4TH DAYS 11,14,18,21,24,28,30,32
     Route: 041

REACTIONS (1)
  - Posterior reversible encephalopathy syndrome [Recovering/Resolving]
